FAERS Safety Report 12546793 (Version 1)
Quarter: 2016Q3

REPORT INFORMATION
  Report Type: Spontaneous
  Country: JP (occurrence: JP)
  Receive Date: 20160711
  Receipt Date: 20160711
  Transmission Date: 20161109
  Serious: Yes (Hospitalization)
  Sender: FDA-Public Use
  Company Number: JP-ROCHE-1767988

PATIENT
  Age: 69 Year
  Sex: Female
  Weight: 42 kg

DRUGS (11)
  1. LYRICA [Concomitant]
     Active Substance: PREGABALIN
     Dosage: AMOUNT OF 1 ONCE ADMINISTRATION: 75 (UNIT UNCERTAINTY)
     Route: 048
     Dates: start: 20141225
  2. PACLITAXEL. [Concomitant]
     Active Substance: PACLITAXEL
     Indication: BREAST CANCER
     Route: 041
     Dates: start: 20150226, end: 20150605
  3. PACLITAXEL. [Concomitant]
     Active Substance: PACLITAXEL
     Indication: BREAST CANCER
     Route: 041
     Dates: start: 20150619, end: 20150703
  4. MAGMITT [Concomitant]
     Active Substance: MAGNESIUM OXIDE
     Dosage: AMOUNT OF 1 ONCE ADMINISTRATION: 500 (UNIT UNCERTAINTY)
     Route: 048
     Dates: start: 20120719
  5. CALONAL [Concomitant]
     Active Substance: ACETAMINOPHEN
     Dosage: AMOUNT OF 1 ONCE ADMINISTRATION: 300 (UNIT UNCERTAINTY)
     Route: 048
     Dates: start: 20120719, end: 20150121
  6. DENOTAS [Concomitant]
     Active Substance: CALCIUM CARBONATE\CHOLECALCIFEROL\MAGNESIUM CARBONATE
     Route: 048
     Dates: start: 20140306
  7. AVASTIN [Suspect]
     Active Substance: BEVACIZUMAB
     Indication: BREAST CANCER
     Dosage: RECEIVED DOSE ON 29/MAR/2016
     Route: 041
     Dates: start: 20150226, end: 20160329
  8. CALONAL [Concomitant]
     Active Substance: ACETAMINOPHEN
     Dosage: AMOUNT OF 1 ONCE ADMINISTRATION: 300 (UNIT UNCERTAINTY)
     Route: 048
     Dates: start: 20150122
  9. PACLITAXEL. [Concomitant]
     Active Substance: PACLITAXEL
     Indication: BREAST CANCER
     Route: 041
     Dates: start: 20150717, end: 20160510
  10. RANMARK [Concomitant]
     Active Substance: DENOSUMAB
     Indication: BREAST CANCER
     Dosage: DOSAGE IS UNCERTAIN.
     Route: 065
     Dates: start: 20140306
  11. LYRICA [Concomitant]
     Active Substance: PREGABALIN
     Dosage: AMOUNT OF 1 ONCE ADMINISTRATION: 75 (UNIT UNCERTAINTY)
     Route: 048
     Dates: start: 20120719, end: 20141224

REACTIONS (3)
  - Cystitis haemorrhagic [Recovered/Resolved]
  - Haemorrhagic anaemia [Recovering/Resolving]
  - Protein urine [Recovering/Resolving]

NARRATIVE: CASE EVENT DATE: 20160308
